FAERS Safety Report 18364554 (Version 1)
Quarter: 2020Q4

REPORT INFORMATION
  Report Type: Spontaneous
  Country: US (occurrence: US)
  Receive Date: 20201009
  Receipt Date: 20201009
  Transmission Date: 20210114
  Serious: No
  Sender: FDA-Public Use
  Company Number: US-AMGEN-USASP2020161652

PATIENT
  Age: 56 Year
  Sex: Female

DRUGS (6)
  1. CLOBETASOL [CLOBETASOL PROPIONATE] [Concomitant]
  2. LANTUS [Concomitant]
     Active Substance: INSULIN GLARGINE
  3. FOLIC ACID. [Concomitant]
     Active Substance: FOLIC ACID
  4. OTEZLA [Suspect]
     Active Substance: APREMILAST
     Indication: PSORIASIS
     Dosage: 30 MILLIGRAM, BID
     Route: 048
     Dates: start: 202009
  5. KETOCONAZOL [Concomitant]
     Active Substance: KETOCONAZOLE
  6. SYNTHROID [Concomitant]
     Active Substance: LEVOTHYROXINE SODIUM

REACTIONS (1)
  - Diarrhoea [Not Recovered/Not Resolved]

NARRATIVE: CASE EVENT DATE: 202009
